FAERS Safety Report 5765228-7 (Version None)
Quarter: 2008Q2

REPORT INFORMATION
  Report Type: 
  Country: None (occurrence: None)
  Receive Date: 20080605
  Receipt Date: 20080529
  Transmission Date: 20081010
  Serious: Yes (Hospitalization)
  Sender: FDA-Public Use
  Company Number: SPV1-2008-01111

PATIENT
  Age: 5 Year
  Sex: Male

DRUGS (1)
  1. ELAPRASE [Suspect]
     Indication: MUCOPOLYSACCHARIDOSIS II
     Dosage: 0.5 MG/KG, IV DRIP
     Route: 041
     Dates: start: 20070122

REACTIONS (4)
  - BLOOD COUNT ABNORMAL [None]
  - CATHETER RELATED INFECTION [None]
  - STAPHYLOCOCCAL SEPSIS [None]
  - TACHYPNOEA [None]
